FAERS Safety Report 5497863-8 (Version None)
Quarter: 2007Q4

REPORT INFORMATION
  Report Type: 
  Country: None (occurrence: None)
  Receive Date: 20071025
  Receipt Date: 20071019
  Transmission Date: 20080405
  Serious: Yes (Other)
  Sender: FDA-Public Use
  Company Number: CA-BAYER-200715716GDS

PATIENT
  Age: 81 Year
  Sex: Female

DRUGS (1)
  1. NEXAVAR [Suspect]
     Indication: METASTATIC RENAL CELL CARCINOMA
     Route: 048
     Dates: start: 20070424, end: 20070924

REACTIONS (2)
  - DYSPEPSIA [None]
  - METASTASES TO LIVER [None]
